FAERS Safety Report 20663836 (Version 2)
Quarter: 2023Q1

REPORT INFORMATION
  Report Type: Report from Study
  Country: CA (occurrence: CA)
  Receive Date: 20220401
  Receipt Date: 20230108
  Transmission Date: 20230417
  Serious: Yes (Other)
  Sender: FDA-Public Use
  Company Number: CA-NOVARTISPH-PHHY2015CA137776

PATIENT
  Age: 59 Year
  Sex: Female

DRUGS (3)
  1. SANDOSTATIN LAR DEPOT [Suspect]
     Active Substance: OCTREOTIDE ACETATE
     Indication: Acromegaly
     Dosage: 20 MG, QMO (EVERY 4 WEEKS)
     Route: 030
     Dates: start: 20150921, end: 20170227
  2. SANDOSTATIN LAR DEPOT [Suspect]
     Active Substance: OCTREOTIDE ACETATE
     Dosage: 30 MG, QMO (EVERY 4 WEEKS)
     Route: 030
     Dates: start: 20150921
  3. SANDOSTATIN LAR DEPOT [Suspect]
     Active Substance: OCTREOTIDE ACETATE

REACTIONS (25)
  - Blindness unilateral [Unknown]
  - Neoplasm progression [Unknown]
  - Eye haemorrhage [Unknown]
  - Blood pressure systolic increased [Unknown]
  - Anxiety [Unknown]
  - Stress [Unknown]
  - Tension [Unknown]
  - Chest pain [Unknown]
  - Ear pain [Unknown]
  - Eczema [Recovering/Resolving]
  - Hypoacusis [Unknown]
  - Feeling abnormal [Unknown]
  - Blood pressure increased [Unknown]
  - Vitreous floaters [Recovering/Resolving]
  - Gait disturbance [Unknown]
  - Blood glucose increased [Unknown]
  - Tenderness [Unknown]
  - Cholelithiasis [Unknown]
  - Insulin-like growth factor increased [Unknown]
  - Fatigue [Unknown]
  - Nausea [Unknown]
  - Diarrhoea [Unknown]
  - Injection site pain [Recovered/Resolved]
  - Injection site pain [Unknown]
  - Injection site haemorrhage [Unknown]

NARRATIVE: CASE EVENT DATE: 20150921
